FAERS Safety Report 9897262 (Version 2)
Quarter: 2014Q4

REPORT INFORMATION
  Report Type: Other
  Country: IT (occurrence: IT)
  Receive Date: 20140214
  Receipt Date: 20141104
  Transmission Date: 20150529
  Serious: Yes (Hospitalization)
  Sender: FDA-Public Use
  Company Number: IT-SUN PHARMACEUTICAL INDUSTRIES LTD-2014SUN00304

PATIENT

DRUGS (4)
  1. XELODA [Suspect]
     Active Substance: CAPECITABINE
     Indication: PRODUCT USED FOR UNKNOWN INDICATION
     Dosage: 3800 MG, UNK
     Route: 048
     Dates: start: 20131029, end: 20131112
  2. XELODA [Concomitant]
     Active Substance: CAPECITABINE
     Dosage: XELODA - 150 MG 60 COMPRESSE FILMRIVESTITE IN BLISTER USO ORALE
     Route: 048
     Dates: start: 20131030, end: 20131112
  3. XELODA [Concomitant]
     Active Substance: CAPECITABINE
     Dosage: XELODA 500 MG 120 COMPRESSE FILMRIVESTITE IN BLISTER USO ORALE
     Route: 048
     Dates: start: 20131030, end: 20131112
  4. OXALIPLATINO SUN 5 MG/ML, CONCENTRATO PER SOLUZIONE PER INFUSIONE [Suspect]
     Active Substance: OXALIPLATIN
     Indication: RECTAL CANCER METASTATIC
     Dosage: 200 MG, CYCLIC
     Route: 042
     Dates: start: 20131029, end: 20131029

REACTIONS (4)
  - Megacolon [Recovered/Resolved]
  - Abdominal pain [Recovered/Resolved]
  - Diarrhoea [Recovered/Resolved]
  - Colitis [Recovered/Resolved]

NARRATIVE: CASE EVENT DATE: 20131114
